FAERS Safety Report 8715105 (Version 3)
Quarter: 2012Q4

REPORT INFORMATION
  Report Type: Spontaneous
  Country: US (occurrence: None)
  Receive Date: 20120725
  Receipt Date: 20120827
  Transmission Date: 20130627
  Serious: Yes (Hospitalization, Disabling)
  Sender: FDA-Public Use
  Company Number: 2012P1049940

PATIENT
  Age: 65 Year
  Sex: Female
  Weight: 68.49 kg

DRUGS (5)
  1. SECONAL SODIUM [Suspect]
     Indication: INSOMNIA
     Dosage: 1 CAPSULE;QOD
     Dates: start: 1967, end: 1973
  2. AMBIEN [Suspect]
     Indication: INSOMNIA
     Dosage: 10 MG;HS
     Dates: start: 201207, end: 201207
  3. RESTORIL [Suspect]
     Indication: INSOMNIA
     Dosage: 15 MG; 30 MG
     Dates: start: 2012, end: 2012
  4. RESTORIL [Suspect]
     Indication: INSOMNIA
     Dosage: 15 MG; 30 MG
     Dates: start: 2012, end: 2012
  5. METHADONE HYDROCHLORIDE [Suspect]
     Indication: PAIN

REACTIONS (17)
  - Cryoglobulinaemia [None]
  - Rheumatoid arthritis [None]
  - Neuropathy peripheral [None]
  - Blindness unilateral [None]
  - Hepatitis C [None]
  - Post-traumatic stress disorder [None]
  - Legal problem [None]
  - Victim of abuse [None]
  - Contusion [None]
  - Balance disorder [None]
  - Caesarean section [None]
  - Fall [None]
  - Retinal vein occlusion [None]
  - Maternal exposure during pregnancy [None]
  - Venous injury [None]
  - Haemorrhage [None]
  - Hepatic failure [None]
